FAERS Safety Report 6693837-X (Version None)
Quarter: 2010Q2

REPORT INFORMATION
  Report Type: 
  Country: None (occurrence: None)
  Receive Date: 20100423
  Receipt Date: 20100412
  Transmission Date: 20101027
  Serious: Yes (Life-Threatening, Other)
  Sender: FDA-Public Use
  Company Number: FR-BRISTOL-MYERS SQUIBB COMPANY-15068125

PATIENT
  Age: 83 Year
  Sex: Female

DRUGS (3)
  1. GLUCOPHAGE [Suspect]
  2. IRBESARTAN + HCTZ [Suspect]
     Dosage: 1DF:IRBESARTAN 300MG/HCTZ 25MG
  3. ASPIRIN [Suspect]

REACTIONS (6)
  - BLOOD CREATININE INCREASED [None]
  - BLOOD POTASSIUM INCREASED [None]
  - DEHYDRATION [None]
  - DIARRHOEA [None]
  - LACTIC ACIDOSIS [None]
  - OLIGURIA [None]
